FAERS Safety Report 24309096 (Version 4)
Quarter: 2025Q1

REPORT INFORMATION
  Report Type: Spontaneous
  Country: GB (occurrence: GB)
  Receive Date: 20240911
  Receipt Date: 20250115
  Transmission Date: 20250408
  Serious: Yes (Life-Threatening, Hospitalization)
  Sender: PFIZER
  Company Number: GB-PFIZER INC-202400254519

PATIENT
  Age: 27 Year
  Sex: Female
  Weight: 129.7 kg

DRUGS (2)
  1. DEPO-PROVERA [Suspect]
     Active Substance: MEDROXYPROGESTERONE ACETATE
     Indication: Contraception
     Route: 030
     Dates: start: 20240708
  2. METHYLPHENIDATE HYDROCHLORIDE [Concomitant]
     Active Substance: METHYLPHENIDATE HYDROCHLORIDE
     Indication: Attention deficit hyperactivity disorder
     Dosage: 36 MG, DAILY

REACTIONS (2)
  - Vaginal haemorrhage [Recovering/Resolving]
  - Uterine contractions abnormal [Recovering/Resolving]

NARRATIVE: CASE EVENT DATE: 20240715
